FAERS Safety Report 6678716-6 (Version None)
Quarter: 2010Q2

REPORT INFORMATION
  Report Type: 
  Country: None (occurrence: None)
  Receive Date: 20100408
  Receipt Date: 20100323
  Transmission Date: 20101027
  Serious: Yes (Hospitalization)
  Sender: FDA-Public Use
  Company Number: DSA_42748_2010

PATIENT
  Age: 34 Year
  Sex: Female

DRUGS (5)
  1. DILTIAZEM HYDROCHLORIDE [Suspect]
     Indication: SINUS TACHYCARDIA
     Dosage: (100 MG QD ORAL) (AS NEEDED ORAL)
     Route: 048
     Dates: end: 20100211
  2. DILTIAZEM HYDROCHLORIDE [Suspect]
     Indication: SINUS TACHYCARDIA
     Dosage: (100 MG QD ORAL) (AS NEEDED ORAL)
     Route: 048
     Dates: end: 20100211
  3. OMEPRAZOLE [Concomitant]
  4. POLAPREZINC [Concomitant]
  5. MYSLEE [Concomitant]

REACTIONS (19)
  - ALANINE AMINOTRANSFERASE INCREASED [None]
  - ASPARTATE AMINOTRANSFERASE INCREASED [None]
  - ATRIOVENTRICULAR BLOCK COMPLETE [None]
  - BLOOD ALBUMIN DECREASED [None]
  - BLOOD BILIRUBIN INCREASED [None]
  - BLOOD CREATINE PHOSPHOKINASE INCREASED [None]
  - BLOOD LACTATE DEHYDROGENASE INCREASED [None]
  - C-REACTIVE PROTEIN INCREASED [None]
  - CUSHING'S SYNDROME [None]
  - ELECTROCARDIOGRAM P WAVE ABNORMAL [None]
  - FALL [None]
  - GAMMA-GLUTAMYLTRANSFERASE INCREASED [None]
  - HAEMATOCRIT DECREASED [None]
  - HAEMOGLOBIN DECREASED [None]
  - HEART RATE DECREASED [None]
  - HYPOTENSION [None]
  - LOSS OF CONSCIOUSNESS [None]
  - SICK SINUS SYNDROME [None]
  - WHITE BLOOD CELL COUNT INCREASED [None]
